FAERS Safety Report 9068032 (Version 2)
Quarter: 2013Q3

REPORT INFORMATION
  Report Type: Spontaneous
  Country: US (occurrence: US)
  Receive Date: 20130215
  Receipt Date: 20130801
  Transmission Date: 20140515
  Serious: No
  Sender: FDA-Public Use
  Company Number: US-BIOGENIDEC-2013BI012890

PATIENT
  Age: 51 Year
  Sex: Female

DRUGS (1)
  1. TYSABRI [Suspect]
     Indication: MULTIPLE SCLEROSIS
     Route: 042
     Dates: start: 20110407

REACTIONS (4)
  - Poor venous access [Recovered/Resolved with Sequelae]
  - Pollakiuria [Unknown]
  - Fatigue [Recovered/Resolved]
  - Sluggishness [Recovered/Resolved]
